FAERS Safety Report 17703732 (Version 1)
Quarter: 2020Q2

REPORT INFORMATION
  Report Type: Spontaneous
  Country: US (occurrence: US)
  Receive Date: 20200424
  Receipt Date: 20200424
  Transmission Date: 20200714
  Serious: Yes (Hospitalization, Other)
  Sender: FDA-Public Use
  Company Number: US-DRREDDYS-USA/USA/20/0122277

PATIENT
  Age: 36 Year
  Sex: Female

DRUGS (1)
  1. HEPARIN SODIUM. [Suspect]
     Active Substance: HEPARIN SODIUM
     Indication: ANTIPHOSPHOLIPID SYNDROME

REACTIONS (10)
  - Ureteric haemorrhage [Recovering/Resolving]
  - Adrenal haemorrhage [Recovering/Resolving]
  - Pain in extremity [Recovering/Resolving]
  - Haematuria [Recovered/Resolved]
  - Maternal exposure during pregnancy [Recovering/Resolving]
  - Abdominal pain upper [Recovering/Resolving]
  - Immune thrombocytopenia [Recovering/Resolving]
  - Oedema peripheral [Recovering/Resolving]
  - Thrombosis [Recovering/Resolving]
  - Coagulation time prolonged [Recovering/Resolving]
